FAERS Safety Report 9068671 (Version 1)
Quarter: 2013Q1

REPORT INFORMATION
  Report Type: Spontaneous
  Country: AT (occurrence: AT)
  Receive Date: 20130128
  Receipt Date: 20130128
  Transmission Date: 20140127
  Serious: Yes (Life-Threatening, Other)
  Sender: FDA-Public Use
  Company Number: AT-ROXANE LABORATORIES, INC.-2013-RO-00133RO

PATIENT
  Age: 26 Year
  Sex: Male
  Weight: 115 kg

DRUGS (5)
  1. FUROSEMIDE [Suspect]
     Dosage: 160 MG
     Route: 048
  2. ANABOLIC STEROIDS [Suspect]
  3. UNSPECIFIED INGREDIENT [Suspect]
  4. THYROID HORMONES [Suspect]
  5. INSULIN [Suspect]

REACTIONS (16)
  - Hypokalaemia [Recovered/Resolved]
  - Paralysis [Recovered/Resolved]
  - Nocturia [Unknown]
  - Weight decreased [Unknown]
  - Hyperglycaemia [Recovered/Resolved]
  - Intentional drug misuse [None]
  - Palpitations [None]
  - Fall [None]
  - Sinus tachycardia [None]
  - Hyperlactacidaemia [None]
  - Blood phosphorus decreased [None]
  - Aspartate aminotransferase increased [None]
  - Alanine aminotransferase increased [None]
  - Blood lactate dehydrogenase increased [None]
  - Blood creatine phosphokinase increased [None]
  - Troponin increased [None]
